FAERS Safety Report 8546769-6 (Version None)
Quarter: 2012Q3

REPORT INFORMATION
  Report Type: 
  Country: None (occurrence: None)
  Receive Date: 20120727
  Receipt Date: 20120207
  Transmission Date: 20120928
  Serious: No
  Sender: FDA-Public Use
  Company Number: US-ASTRAZENECA-2012SE08676

PATIENT
  Age: 44 Year
  Sex: Male

DRUGS (5)
  1. RISPERADOL [Concomitant]
  2. SEROQUEL [Suspect]
     Indication: POST-TRAUMATIC STRESS DISORDER
     Route: 048
  3. SEROQUEL [Suspect]
     Indication: SLEEP DISORDER
     Route: 048
  4. LITHIUM CARBONATE [Concomitant]
  5. TRAZODONE HCL [Concomitant]

REACTIONS (3)
  - WRONG DRUG ADMINISTERED [None]
  - OFF LABEL USE [None]
  - NASOPHARYNGITIS [None]
